FAERS Safety Report 12465507 (Version 1)
Quarter: 2016Q2

REPORT INFORMATION
  Report Type: Spontaneous
  Country: FR (occurrence: FR)
  Receive Date: 20160614
  Receipt Date: 20160614
  Transmission Date: 20160815
  Serious: Yes (Hospitalization)
  Sender: FDA-Public Use
  Company Number: FR-SA-2016SA109868

PATIENT
  Age: 56 Year
  Sex: Male

DRUGS (12)
  1. TAHOR [Suspect]
     Active Substance: ATORVASTATIN CALCIUM
     Indication: DYSLIPIDAEMIA
     Dosage: STRENGTH: 40 MG
     Route: 048
  2. OFLOCET [Concomitant]
     Active Substance: OFLOXACIN
     Indication: PROSTATITIS
     Dosage: 200MG, FILM COATED DIVISIBLE TABLETS.?2 IN 1 DAY
     Route: 048
     Dates: start: 20160517, end: 20160523
  3. HUMALOG [Concomitant]
     Active Substance: INSULIN LISPRO
  4. CO-APROVEL [Suspect]
     Active Substance: HYDROCHLOROTHIAZIDE\IRBESARTAN
     Indication: HYPERTENSION
     Route: 048
     Dates: end: 20160523
  5. PLAVIX [Concomitant]
     Active Substance: CLOPIDOGREL BISULFATE
     Indication: CARDIOVASCULAR EVENT PROPHYLAXIS
     Route: 048
  6. AVODART [Concomitant]
     Active Substance: DUTASTERIDE
     Indication: BENIGN PROSTATIC HYPERPLASIA
     Dosage: STRENGTH: 0.5 MG
     Route: 048
  7. AERIUS [Concomitant]
     Active Substance: DESLORATADINE
     Dosage: STRENGTH: 5 MG
     Route: 048
  8. GLUCOPHAGE [Concomitant]
     Active Substance: METFORMIN HYDROCHLORIDE
     Indication: TYPE 1 DIABETES MELLITUS
     Dosage: STRENGTH: 1000 MG
     Route: 048
  9. JOSIR [Concomitant]
     Active Substance: TAMSULOSIN
     Indication: BENIGN PROSTATIC HYPERPLASIA
     Dosage: MICRO GRANULES EXTENDED RELEASE CAPSULE
     Route: 048
  10. TRIATEC [Suspect]
     Active Substance: RAMIPRIL
     Indication: HYPERTENSION
     Route: 048
     Dates: end: 20160523
  11. TRAMADOL. [Concomitant]
     Active Substance: TRAMADOL
  12. GENTALLINE [Concomitant]
     Active Substance: GENTAMICIN SULFATE
     Dates: start: 20160517, end: 20160517

REACTIONS (2)
  - Macroglossia [Recovered/Resolved]
  - Localised oedema [Recovered/Resolved]

NARRATIVE: CASE EVENT DATE: 20160523
